FAERS Safety Report 9284969 (Version 30)
Quarter: 2020Q1

REPORT INFORMATION
  Report Type: Report from Study
  Country: CA (occurrence: CA)
  Receive Date: 20130513
  Receipt Date: 20200221
  Transmission Date: 20200409
  Serious: Yes (Other)
  Sender: FDA-Public Use
  Company Number: PHHY2013CA033429

PATIENT
  Age: 70 Year
  Sex: Female
  Weight: 56 kg

DRUGS (4)
  1. AFINITOR [Suspect]
     Active Substance: EVEROLIMUS
     Indication: PRODUCT USED FOR UNKNOWN INDICATION
     Dosage: 5 MG, QD
     Route: 048
     Dates: start: 20171016
  2. SANDOSTATIN [Suspect]
     Active Substance: OCTREOTIDE ACETATE
     Indication: PANCREATIC NEUROENDOCRINE TUMOUR
     Dosage: 100 UG, QD
     Route: 058
     Dates: start: 20130403, end: 20130403
  3. SANDOSTATIN LAR DEPOT [Suspect]
     Active Substance: OCTREOTIDE ACETATE
     Indication: PANCREATIC NEUROENDOCRINE TUMOUR
     Dosage: 30 MG, QMO (EVERY 4 WEEKS)
     Route: 030
     Dates: start: 20130706, end: 20171113
  4. SANDOSTATIN LAR DEPOT [Suspect]
     Active Substance: OCTREOTIDE ACETATE
     Dosage: 30 MG, QMO (EVERY 4 WEEKS)
     Route: 030
     Dates: start: 20180706

REACTIONS (18)
  - Hepatic lesion [Unknown]
  - Blood pressure systolic increased [Unknown]
  - Intestinal perforation [Unknown]
  - Faeces pale [Unknown]
  - Arthralgia [Recovered/Resolved]
  - Injection site pain [Unknown]
  - Metastases to liver [Unknown]
  - Decreased appetite [Unknown]
  - Limb discomfort [Unknown]
  - Malignant neoplasm progression [Unknown]
  - Pain in extremity [Recovered/Resolved]
  - Blood pressure diastolic decreased [Unknown]
  - Drug ineffective [Unknown]
  - Clostridium difficile colitis [Not Recovered/Not Resolved]
  - Weight decreased [Unknown]
  - Steatorrhoea [Unknown]
  - Injection site haemorrhage [Unknown]
  - Injection site mass [Recovered/Resolved]

NARRATIVE: CASE EVENT DATE: 20140616
